FAERS Safety Report 4582342-2 (Version None)
Quarter: 2005Q1

REPORT INFORMATION
  Report Type: 
  Country: None (occurrence: None)
  Receive Date: 20050215
  Receipt Date: 20050202
  Transmission Date: 20050727
  Serious: Yes (Other)
  Sender: FDA-Public Use
  Company Number: CA-JNJFOC-20050104661

PATIENT
  Sex: Female
  Weight: 58.9 kg

DRUGS (4)
  1. REMICADE [Suspect]
     Indication: ANKYLOSING SPONDYLITIS
     Route: 042
  2. PURINETHOL [Concomitant]
     Indication: CROHN'S DISEASE
     Route: 049
  3. CALCIUM CARBONATE [Concomitant]
     Indication: OSTEOPOROSIS
     Route: 049
  4. DRISDOL [Concomitant]
     Indication: NUTRITIONAL SUPPORT
     Route: 049

REACTIONS (2)
  - DEAFNESS UNILATERAL [None]
  - THERAPY NON-RESPONDER [None]
